FAERS Safety Report 21836310 (Version 14)
Quarter: 2024Q4

REPORT INFORMATION
  Report Type: Report from Study
  Country: US (occurrence: US)
  Receive Date: 20230109
  Receipt Date: 20241112
  Transmission Date: 20250114
  Serious: Yes (Other)
  Sender: NOVARTIS
  Company Number: US-002147023-NVSC2023US001938

PATIENT
  Sex: Female

DRUGS (1)
  1. KESIMPTA [Suspect]
     Active Substance: OFATUMUMAB
     Indication: Multiple sclerosis
     Dosage: 20 MG, QW
     Route: 058
     Dates: start: 20221209

REACTIONS (23)
  - Multiple sclerosis relapse [Unknown]
  - Malaise [Unknown]
  - Herpes simplex reactivation [Unknown]
  - Herpes zoster [Unknown]
  - Skin discomfort [Unknown]
  - Skin burning sensation [Unknown]
  - Gait inability [Not Recovered/Not Resolved]
  - Vision blurred [Unknown]
  - Fatigue [Unknown]
  - Headache [Recovered/Resolved]
  - Body temperature increased [Unknown]
  - Movement disorder [Recovered/Resolved]
  - Body temperature fluctuation [Unknown]
  - Hypoaesthesia [Unknown]
  - Pain in extremity [Unknown]
  - Influenza like illness [Recovering/Resolving]
  - Chills [Recovered/Resolved]
  - Pyrexia [Recovered/Resolved]
  - Nausea [Not Recovered/Not Resolved]
  - Pain [Recovered/Resolved]
  - Headache [Recovered/Resolved]
  - Muscular weakness [Unknown]
  - Temperature intolerance [Unknown]
